FAERS Safety Report 11630730 (Version 1)
Quarter: 2015Q4

REPORT INFORMATION
  Report Type: Spontaneous
  Country: US (occurrence: US)
  Receive Date: 20151014
  Receipt Date: 20151014
  Transmission Date: 20160304
  Serious: No
  Sender: FDA-Public Use
  Company Number: US-WATSON-2015-18402

PATIENT
  Age: 62 Year
  Sex: Female

DRUGS (1)
  1. CARBIDOPA/LEVODOPA (AELLC) [Suspect]
     Active Substance: CARBIDOPA\LEVODOPA
     Indication: PARKINSONISM
     Dosage: 1/2 TABLET IN MORNING, 1 TABLET IN AFTERNOON, 1 TABLET AT BEDTIME
     Route: 048
     Dates: start: 20150819

REACTIONS (3)
  - Intentional underdose [None]
  - Parkinson^s disease [Not Recovered/Not Resolved]
  - Paralysis [Not Recovered/Not Resolved]

NARRATIVE: CASE EVENT DATE: 20150819
